FAERS Safety Report 23338654 (Version 1)
Quarter: 2023Q4

REPORT INFORMATION
  Report Type: Spontaneous
  Country: FR (occurrence: FR)
  Receive Date: 20231226
  Receipt Date: 20231226
  Transmission Date: 20240110
  Serious: Yes (Other)
  Sender: FDA-Public Use
  Company Number: FR-002147023-NVSC2023FR271427

PATIENT
  Age: 80 Year
  Sex: Male
  Weight: 57 kg

DRUGS (2)
  1. MEKINIST [Suspect]
     Active Substance: TRAMETINIB DIMETHYL SULFOXIDE
     Indication: Papillary thyroid cancer
     Dosage: 2 MG / 1 FOIS JOUR
     Route: 048
     Dates: start: 20220427, end: 20231128
  2. TAFINLAR [Suspect]
     Active Substance: DABRAFENIB MESYLATE
     Indication: Papillary thyroid cancer
     Dosage: 150 MG, Q12H (150 MG / 2 FOIS JOUR)
     Route: 048
     Dates: start: 20220427, end: 20231128

REACTIONS (1)
  - Squamous cell carcinoma [Not Recovered/Not Resolved]

NARRATIVE: CASE EVENT DATE: 20231109
